FAERS Safety Report 21041848 (Version 1)
Quarter: 2022Q3

REPORT INFORMATION
  Report Type: Spontaneous
  Country: US (occurrence: US)
  Receive Date: 20220705
  Receipt Date: 20220705
  Transmission Date: 20221026
  Serious: No
  Sender: FDA-Public Use
  Company Number: US-ORGANON-O2206USA002626

PATIENT
  Age: 26 Year
  Sex: Female

DRUGS (5)
  1. FOLLISTIM AQ [Suspect]
     Active Substance: FOLLITROPIN
     Indication: Breast cancer female
     Dosage: 900 UNT/1.08ML, 225 UNITS UNDER THE SKIN DAILY AS DIRECTED
     Route: 058
     Dates: start: 20220621
  2. PREGNYL [Concomitant]
     Active Substance: CHORIOGONADOTROPIN ALFA
  3. GANIRELIX ACETATE [Concomitant]
     Active Substance: GANIRELIX ACETATE
  4. MENOPUR [Concomitant]
     Active Substance: FOLLITROPIN\LUTEINIZING HORMONE
  5. PROZAC [Concomitant]
     Active Substance: FLUOXETINE HYDROCHLORIDE

REACTIONS (2)
  - Feeling abnormal [Unknown]
  - Product use in unapproved indication [Unknown]

NARRATIVE: CASE EVENT DATE: 20220601
